FAERS Safety Report 6063070-3 (Version None)
Quarter: 2009Q1

REPORT INFORMATION
  Report Type: 
  Country: None (occurrence: None)
  Receive Date: 20090203
  Receipt Date: 20090122
  Transmission Date: 20090719
  Serious: Yes (Other)
  Sender: FDA-Public Use
  Company Number: PHEH2009US01024

PATIENT
  Sex: Female

DRUGS (1)
  1. LESCOL [Suspect]

REACTIONS (2)
  - HAND FRACTURE [None]
  - LOSS OF CONSCIOUSNESS [None]
